FAERS Safety Report 4396257-6 (Version None)
Quarter: 2004Q3

REPORT INFORMATION
  Report Type: 
  Country: None (occurrence: None)
  Receive Date: 20040713
  Receipt Date: 20040706
  Transmission Date: 20050211
  Serious: Yes (Other)
  Sender: FDA-Public Use
  Company Number: PHBS2004BE09060

PATIENT
  Age: 23 Year
  Sex: Male

DRUGS (3)
  1. ANAFRANIL [Concomitant]
     Dosage: 225 MG/D
     Route: 048
  2. CLOZAPINE [Suspect]
     Indication: SCHIZOPHRENIA
     Dosage: 100 MG, TID
     Route: 048
  3. RISPERDAL [Concomitant]
     Dosage: 2.5 MG/D
     Route: 065

REACTIONS (3)
  - BLOOD CREATINE PHOSPHOKINASE INCREASED [None]
  - MYOCARDITIS [None]
  - SEROTONIN SYNDROME [None]
